FAERS Safety Report 21985936 (Version 1)
Quarter: 2023Q1

REPORT INFORMATION
  Report Type: Spontaneous
  Country: US (occurrence: US)
  Receive Date: 20230213
  Receipt Date: 20230213
  Transmission Date: 20230417
  Serious: Yes (Hospitalization, Other)
  Sender: FDA-Public Use
  Company Number: US-FreseniusKabi-FK202301753

PATIENT
  Age: 81 Year
  Sex: Female

DRUGS (3)
  1. VINBLASTINE [Suspect]
     Active Substance: VINBLASTINE
     Indication: Hodgkin^s disease mixed cellularity stage unspecified
  2. DACARBAZINE [Suspect]
     Active Substance: DACARBAZINE
     Indication: Hodgkin^s disease mixed cellularity stage unspecified
  3. ADRIAMYCIN [Suspect]
     Active Substance: DOXORUBICIN HYDROCHLORIDE
     Indication: Hodgkin^s disease mixed cellularity stage unspecified
     Dosage: DOXORUBICIN

REACTIONS (2)
  - Haemophagocytic lymphohistiocytosis [Unknown]
  - Acute monocytic leukaemia [Unknown]
